FAERS Safety Report 9330588 (Version 2)
Quarter: 2013Q2

REPORT INFORMATION
  Report Type: Spontaneous
  Country: US (occurrence: US)
  Receive Date: 20130605
  Receipt Date: 20130619
  Transmission Date: 20140414
  Serious: Yes (Other)
  Sender: FDA-Public Use
  Company Number: PHEH2013US012148

PATIENT
  Age: 70 Year
  Sex: Female
  Weight: 54 kg

DRUGS (6)
  1. RECLAST [Suspect]
     Indication: OSTEOPOROSIS
     Dosage: 5 MG, ONCE YEARLY
     Route: 042
  2. RECLAST [Suspect]
     Dosage: 5 MG, ONCE YEARLY
     Route: 042
  3. RECLAST [Suspect]
     Dosage: 5 MG, ONCE YEARLY
     Route: 042
     Dates: start: 20120614
  4. ATENOL [Concomitant]
     Dosage: UNK UKN, UNK
     Route: 048
  5. PRILOSEC [Concomitant]
     Dosage: UNK UKN, UNK
     Route: 048
  6. ANTIHYPERTENSIVE DRUGS [Concomitant]
     Dosage: UNK UKN, UNK

REACTIONS (4)
  - Macular degeneration [Not Recovered/Not Resolved]
  - Scotoma [Not Recovered/Not Resolved]
  - Visual acuity reduced [Not Recovered/Not Resolved]
  - Visual field defect [Not Recovered/Not Resolved]
